FAERS Safety Report 26140984 (Version 1)
Quarter: 2025Q4

REPORT INFORMATION
  Report Type: Spontaneous
  Country: US (occurrence: None)
  Receive Date: 20251209
  Receipt Date: 20251209
  Transmission Date: 20260118
  Serious: Yes (Disabling)
  Sender: FDA-CTU
  Company Number: None

PATIENT
  Age: 35 Year
  Sex: Female

DRUGS (10)
  1. OFLOXACIN OTIC [Suspect]
     Active Substance: OFLOXACIN
     Indication: Ear infection
     Dosage: OTHER QUANTITY : 5 DROP(S);?FREQUENCY : EVERY 12 HOURS;
     Route: 001
     Dates: start: 20250804, end: 20250806
  2. GLUTATHIONE [Suspect]
     Active Substance: GLUTATHIONE
  3. Ketamine suppositories [Concomitant]
  4. LIPOSOMAL GLUTATHIONE [Concomitant]
  5. Liposomal PQQ [Concomitant]
  6. UBIQUINOL [Concomitant]
     Active Substance: UBIQUINOL
  7. DIETARY SUPPLEMENT\GRAPE SEED EXTRACT [Concomitant]
     Active Substance: DIETARY SUPPLEMENT\GRAPE SEED EXTRACT
  8. VIT B2 [Concomitant]
  9. VITAMIN C [Concomitant]
     Active Substance: ASCORBIC ACID
  10. VITAMIN B3 [Concomitant]
     Active Substance: NIACIN

REACTIONS (2)
  - Product advertising issue [None]
  - Product use in unapproved indication [None]

NARRATIVE: CASE EVENT DATE: 20250806
